FAERS Safety Report 18176285 (Version 1)
Quarter: 2020Q3

REPORT INFORMATION
  Report Type: Spontaneous
  Country: DE (occurrence: DE)
  Receive Date: 20200820
  Receipt Date: 20200820
  Transmission Date: 20201103
  Serious: Yes (Hospitalization)
  Sender: FDA-Public Use
  Company Number: DE-MYLANLABS-2020M1071483

PATIENT
  Age: 85 Year
  Sex: Female

DRUGS (13)
  1. SIMVASTATIN. [Concomitant]
     Active Substance: SIMVASTATIN
     Dosage: 40 MG, 0?0?1?0
  2. METOPROLOL. [Concomitant]
     Active Substance: METOPROLOL
     Dosage: 47.5 MG, 1?0?0.5?0
  3. BRALTUS [Concomitant]
     Active Substance: TIOTROPIUM BROMIDE
     Dosage: NK ?G, 1?0?0?0, DOSIERAEROSOL
     Route: 055
  4. VALSARTAN. [Concomitant]
     Active Substance: VALSARTAN
     Dosage: 160 MG, 0.5?0?0?0
  5. TORASEMIDE [Suspect]
     Active Substance: TORSEMIDE
     Indication: PRODUCT USED FOR UNKNOWN INDICATION
     Dosage: 10 MG, 1?0?0?0
  6. METAMIZOL                          /06276701/ [Concomitant]
     Active Substance: METAMIZOLE
     Dosage: 40 GTT, 4X, TROPFEN
     Route: 048
  7. NITRENDIPIN [Concomitant]
     Active Substance: NITRENDIPINE
     Dosage: 20 MG, 1?0?1?0
  8. MIFLONIDE [Concomitant]
     Active Substance: BUDESONIDE
     Dosage: 400 ?G, 1?0?1?0
  9. LEVOTHYROXIN [Concomitant]
     Active Substance: LEVOTHYROXINE
     Dosage: 50 ?G, 1?0?0?0
  10. ALLOBETA [Concomitant]
     Dosage: 300 MG, 1?0?0?0
  11. ELIQUIS [Concomitant]
     Active Substance: APIXABAN
     Dosage: 2.5 MG, 1?0?1?0
  12. SALBUTAMOL [Concomitant]
     Active Substance: ALBUTEROL
     Dosage: UNK UNK, 2X
  13. PANTOPRAZOL                        /01263201/ [Concomitant]
     Active Substance: PANTOPRAZOLE
     Dosage: 40 MG, 1?0?0?0

REACTIONS (4)
  - Thirst [Recovering/Resolving]
  - General physical health deterioration [Recovering/Resolving]
  - Confusional state [Recovering/Resolving]
  - Electrolyte imbalance [Recovering/Resolving]
